FAERS Safety Report 15900411 (Version 1)
Quarter: 2019Q1

REPORT INFORMATION
  Report Type: Spontaneous
  Country: FR (occurrence: FR)
  Receive Date: 20190201
  Receipt Date: 20190201
  Transmission Date: 20190417
  Serious: Yes (Hospitalization)
  Sender: FDA-Public Use
  Company Number: FR-PFIZER INC-2019042991

PATIENT
  Age: 27 Year
  Sex: Male

DRUGS (2)
  1. PHENOXYMETHYLPENICILLINE [Concomitant]
     Route: 048
  2. IBUPROFEN. [Suspect]
     Active Substance: IBUPROFEN
     Indication: TONSILLITIS
     Dosage: 1600 MG, 1X/DAY
     Route: 048
     Dates: start: 20181222, end: 20181229

REACTIONS (1)
  - Peritonsillar abscess [Recovered/Resolved]

NARRATIVE: CASE EVENT DATE: 20181229
